FAERS Safety Report 8228237-4 (Version None)
Quarter: 2012Q1

REPORT INFORMATION
  Report Type: 
  Country: None (occurrence: None)
  Receive Date: 20120322
  Receipt Date: 20111121
  Transmission Date: 20120608
  Serious: Yes (Other)
  Sender: FDA-Public Use
  Company Number: US-BRISTOL-MYERS SQUIBB COMPANY-16227498

PATIENT
  Age: 63 Year
  Sex: Male
  Weight: 50 kg

DRUGS (7)
  1. DECADRON [Concomitant]
  2. IRINOTECAN HCL [Concomitant]
  3. PEPCID [Concomitant]
  4. BENADRYL [Concomitant]
  5. ERBITUX [Suspect]
     Indication: GASTRIC CANCER
     Dosage: THERAPY ON 19SEP11,NUMBER OF TREATMENTS:2
     Dates: start: 20110912
  6. ALOXI [Concomitant]
  7. ATROPINE [Concomitant]

REACTIONS (1)
  - NEOPLASM MALIGNANT [None]
